FAERS Safety Report 8853715 (Version 3)
Quarter: 2015Q1

REPORT INFORMATION
  Report Type: Spontaneous
  Country: JP (occurrence: JP)
  Receive Date: 20121022
  Receipt Date: 20150309
  Transmission Date: 20150721
  Serious: Yes (Hospitalization)
  Sender: FDA-Public Use
  Company Number: JP-PFIZER INC-2012256699

PATIENT
  Age: 71 Year
  Sex: Female
  Weight: 44 kg

DRUGS (3)
  1. LOXONIN [Concomitant]
     Active Substance: LOXOPROFEN SODIUM
     Indication: CHEST PAIN
     Dosage: 1 TABLET TWICE DAILY, AS NEEDED
     Route: 048
     Dates: start: 20120921
  2. INLYTA [Suspect]
     Active Substance: AXITINIB
     Indication: METASTATIC RENAL CELL CARCINOMA
     Dosage: 10 MG, DAILY
     Route: 048
     Dates: start: 20120921, end: 20121004
  3. LOXONIN [Concomitant]
     Active Substance: LOXOPROFEN SODIUM
     Indication: BACK PAIN
     Dosage: 1 DF, 2X/DAY
     Route: 048
     Dates: start: 20120927

REACTIONS (3)
  - Cardiac failure acute [Recovered/Resolved]
  - Diarrhoea [Unknown]
  - Blood pressure increased [Recovered/Resolved]

NARRATIVE: CASE EVENT DATE: 20120928
